FAERS Safety Report 19060601 (Version 2)
Quarter: 2021Q2

REPORT INFORMATION
  Report Type: Spontaneous
  Country: JP (occurrence: JP)
  Receive Date: 20210326
  Receipt Date: 20210406
  Transmission Date: 20210717
  Serious: Yes (Hospitalization, Other)
  Sender: FDA-Public Use
  Company Number: JP-TEVA-2021-JP-001299J

PATIENT
  Age: 77 Year
  Sex: Female

DRUGS (8)
  1. FUROSEMIDE TABLET 40MG ^TAKEDA TEVA^ [Suspect]
     Active Substance: FUROSEMIDE
     Indication: PRODUCT USED FOR UNKNOWN INDICATION
     Route: 048
  2. SAMSCA [Suspect]
     Active Substance: TOLVAPTAN
     Route: 065
  3. FEBURIC [Suspect]
     Active Substance: FEBUXOSTAT
     Route: 065
  4. ATORVASTATIN TABLET 5MG ^TYK^ [Suspect]
     Active Substance: ATORVASTATIN
     Indication: PRODUCT USED FOR UNKNOWN INDICATION
     Route: 048
  5. BASSAMIN COMBINATION TABLET A81 [Suspect]
     Active Substance: ASPIRIN\DIHYDROXYALUMINUM AMINOACETATE\MAGNESIUM CARBONATE
     Indication: PRODUCT USED FOR UNKNOWN INDICATION
     Dosage: 1 DOSAGE FORMS DAILY; 1 DOSAGE FORM =  81MG ASPIRIN + 22MG MAGNESIUM CARBONATE + 11MG DIHYDROXYALUMI
     Route: 048
     Dates: end: 20210322
  6. SODIUM FERROUS CITRATE TAB. 50MG ^TAKEDA TEVA^ [Suspect]
     Active Substance: SODIUM FERROUS CITRATE
     Indication: PRODUCT USED FOR UNKNOWN INDICATION
     Route: 048
  7. BISOPROLOL FUMARATE TABLET 5MG ^TEVA^ [Suspect]
     Active Substance: BISOPROLOL FUMARATE
     Indication: PRODUCT USED FOR UNKNOWN INDICATION
     Route: 048
  8. TRAZENTA [Suspect]
     Active Substance: LINAGLIPTIN
     Route: 065

REACTIONS (2)
  - Anaemia [Unknown]
  - Melaena [Recovered/Resolved]

NARRATIVE: CASE EVENT DATE: 20210322
